FAERS Safety Report 9506451 (Version 3)
Quarter: 2013Q4

REPORT INFORMATION
  Report Type: Spontaneous
  Country: IT (occurrence: None)
  Receive Date: 20130904
  Receipt Date: 20131022
  Transmission Date: 20140711
  Serious: Yes (Hospitalization)
  Sender: FDA-Public Use
  Company Number: AUR-APL-2013-07239

PATIENT
  Age: 83 Year
  Sex: Male

DRUGS (3)
  1. SIMVASTATIN [Suspect]
     Indication: PRODUCT USED FOR UNKNOWN INDICATION
     Dosage: 20 MG, 1 D, ORAL
     Route: 048
     Dates: start: 20130615, end: 20130615
  2. PLAVIX [Suspect]
     Indication: PRODUCT USED FOR UNKNOWN INDICATION
     Dosage: 75 MG, 1 D, ORAL
     Route: 048
     Dates: start: 20130615, end: 20130620
  3. CARDIOASPIRIN [Suspect]
     Indication: PRODUCT USED FOR UNKNOWN INDICATION
     Dosage: 100 MG, 1 D, ORAL
     Route: 048
     Dates: start: 20130615, end: 20130620

REACTIONS (3)
  - Syncope [None]
  - Vertigo [None]
  - Head injury [None]
